FAERS Safety Report 8558190-5 (Version None)
Quarter: 2012Q3

REPORT INFORMATION
  Report Type: 
  Country: None (occurrence: None)
  Receive Date: 20120801
  Receipt Date: 20120723
  Transmission Date: 20120928
  Serious: Yes (Hospitalization, Other)
  Sender: FDA-Public Use
  Company Number: GB-NAPPMUNDI-GBR-2012-0011106

PATIENT
  Sex: Female

DRUGS (2)
  1. OXYCONTIN [Suspect]
     Indication: PAIN
     Dosage: 40 MG, PM
     Route: 048
  2. OXYCODONE HCL [Suspect]
     Indication: BREAKTHROUGH PAIN
     Dosage: 30 MG, ODD DAYS
     Route: 048
     Dates: start: 20101001

REACTIONS (2)
  - RESPIRATORY DEPRESSION [None]
  - HEPATIC FUNCTION ABNORMAL [None]
